FAERS Safety Report 23214640 (Version 2)
Quarter: 2024Q1

REPORT INFORMATION
  Report Type: Report from Study
  Country: US (occurrence: US)
  Receive Date: 20231121
  Receipt Date: 20240215
  Transmission Date: 20240410
  Serious: Yes (Life-Threatening, Hospitalization, Other)
  Sender: FDA-Public Use
  Company Number: US-BRISTOL-MYERS SQUIBB COMPANY-2023-164024

PATIENT
  Age: 63 Year
  Sex: Female
  Weight: 56.699 kg

DRUGS (1)
  1. OPDIVO [Suspect]
     Active Substance: NIVOLUMAB
     Indication: Renal cell carcinoma
     Route: 042
     Dates: start: 20180201, end: 201807

REACTIONS (5)
  - Type 1 diabetes mellitus [Unknown]
  - Discontinued product administered [Unknown]
  - Thyroid disorder [Unknown]
  - Weight decreased [Unknown]
  - Rheumatoid arthritis [Unknown]

NARRATIVE: CASE EVENT DATE: 20180701
